FAERS Safety Report 15376332 (Version 1)
Quarter: 2018Q3

REPORT INFORMATION
  Report Type: Spontaneous
  Country: US (occurrence: US)
  Receive Date: 20180912
  Receipt Date: 20180912
  Transmission Date: 20181010
  Serious: No
  Sender: FDA-Public Use
  Company Number: US-ASTRAZENECA-2018SF07748

PATIENT
  Age: 17905 Day
  Sex: Female

DRUGS (1)
  1. FASENRA [Suspect]
     Active Substance: BENRALIZUMAB
     Indication: ASTHMA PROPHYLAXIS
     Dosage: 30MG/ML EVERY FOUR WEEKS
     Route: 058

REACTIONS (1)
  - Oropharyngeal pain [Unknown]

NARRATIVE: CASE EVENT DATE: 20180820
